FAERS Safety Report 6519532-5 (Version None)
Quarter: 2009Q4

REPORT INFORMATION
  Report Type: 
  Country: None (occurrence: None)
  Receive Date: 20091228
  Receipt Date: 20091215
  Transmission Date: 20100525
  Serious: Yes (Death, Hospitalization, Other)
  Sender: FDA-Public Use
  Company Number: US-PFIZER INC-2009289264

PATIENT
  Sex: Female

DRUGS (3)
  1. SUTENT [Suspect]
     Indication: METASTATIC RENAL CELL CARCINOMA
     Dosage: 50 MG, 1X/DAY, X 28 DAYS EVERY 42 DAYS
     Route: 048
     Dates: start: 20091002
  2. INSULIN [Concomitant]
     Dosage: UNK
  3. NITROGLYCERIN [Concomitant]
     Dosage: UNK

REACTIONS (10)
  - CARDIAC FAILURE CONGESTIVE [None]
  - DEATH [None]
  - DYSPNOEA [None]
  - HYPOGLYCAEMIA [None]
  - LUNG INFECTION [None]
  - MUSCULAR WEAKNESS [None]
  - PYREXIA [None]
  - RESPIRATORY ARREST [None]
  - STOMATITIS [None]
  - SWELLING [None]
